FAERS Safety Report 22399018 (Version 1)
Quarter: 2023Q2

REPORT INFORMATION
  Report Type: Spontaneous
  Country: None (occurrence: US)
  Receive Date: 20230602
  Receipt Date: 20230602
  Transmission Date: 20230722
  Serious: Yes (Hospitalization, Other)
  Sender: FDA-Public Use
  Company Number: US-Therakind Limited-2142280

PATIENT
  Sex: Female

DRUGS (1)
  1. METHOTREXATE [Suspect]
     Active Substance: METHOTREXATE
     Indication: Sarcoidosis

REACTIONS (3)
  - Whipple^s disease [Recovering/Resolving]
  - Failure to thrive [Recovering/Resolving]
  - Product use in unapproved indication [Unknown]
